FAERS Safety Report 6327749-8 (Version None)
Quarter: 2009Q3

REPORT INFORMATION
  Report Type: 
  Country: None (occurrence: None)
  Receive Date: 20090824
  Receipt Date: 20090602
  Transmission Date: 20100115
  Serious: No
  Sender: FDA-Public Use
  Company Number: 2009S1009978

PATIENT
  Sex: Female

DRUGS (1)
  1. ZOLPIDEM [Suspect]
     Dosage: 10 MG; ORAL
     Route: 048

REACTIONS (6)
  - HEADACHE [None]
  - INITIAL INSOMNIA [None]
  - MALAISE [None]
  - NECK PAIN [None]
  - PAIN [None]
  - POOR QUALITY SLEEP [None]
